FAERS Safety Report 7944626-7 (Version None)
Quarter: 2011Q4

REPORT INFORMATION
  Report Type: 
  Country: None (occurrence: None)
  Receive Date: 20111122
  Receipt Date: 20110721
  Transmission Date: 20120403
  Serious: Yes (Other)
  Sender: FDA-Public Use
  Company Number: PHHY2011US18324

PATIENT
  Age: 58 Year
  Sex: Female

DRUGS (7)
  1. PROVIGIL [Concomitant]
  2. LISINOPRIL [Concomitant]
  3. LEVOTHYROXINE SODIUM [Concomitant]
  4. GILENYA [Suspect]
     Indication: RELAPSING-REMITTING MULTIPLE SCLEROSIS
     Dosage: 0.5 MG, QD, ORAL 0.5 MG, DAILY, ORAL 0.5 MG, QD
     Route: 048
     Dates: start: 20110127
  5. GILENYA [Suspect]
     Indication: RELAPSING-REMITTING MULTIPLE SCLEROSIS
     Dosage: 0.5 MG, QD, ORAL 0.5 MG, DAILY, ORAL 0.5 MG, QD
     Route: 048
     Dates: start: 20110401
  6. GILENYA [Suspect]
     Indication: RELAPSING-REMITTING MULTIPLE SCLEROSIS
     Dosage: 0.5 MG, QD, ORAL 0.5 MG, DAILY, ORAL 0.5 MG, QD
     Route: 048
     Dates: start: 20101229
  7. CYMBALTA [Concomitant]

REACTIONS (4)
  - RASH [None]
  - HERPES ZOSTER [None]
  - BACK PAIN [None]
  - BLISTER [None]
